FAERS Safety Report 4896345-1 (Version None)
Quarter: 2006Q1

REPORT INFORMATION
  Report Type: 
  Country: None (occurrence: None)
  Receive Date: 20060126
  Receipt Date: 20060113
  Transmission Date: 20060701
  Serious: Yes (Hospitalization)
  Sender: FDA-Public Use
  Company Number: TNZFR200600006

PATIENT
  Age: 67 Year
  Sex: Female

DRUGS (6)
  1. INNOHEP [Suspect]
     Dosage: 14000 IU (14000 IU, ONCE DAILY), SUBCUTANEOUS
     Route: 058
     Dates: start: 20051122
  2. TRAMADOL HCL [Suspect]
     Dosage: 100 MG (50 MG,TWICE DAILY), ORAL
     Route: 048
     Dates: start: 20051126, end: 20051128
  3. DI-ANTALVIC (DI-GESIC) [Suspect]
     Dosage: 6 DOSAGE FORMS (2 DOSAGE FORMS, THREE TIMES DAILY), ORAL
     Route: 048
     Dates: start: 20051129, end: 20051201
  4. PREVISCAN (FLUINDIONE) [Suspect]
     Dosage: ORAL
     Route: 048
     Dates: start: 20051124
  5. NICARDIPINE HCL [Suspect]
     Dosage: 100 MG (50 MG, TWICE DAILY), ORAL
     Route: 048
     Dates: end: 20051130
  6. ZOCOR [Suspect]
     Dosage: 40 MG, ORAL
     Route: 048
     Dates: end: 20051130

REACTIONS (2)
  - ALANINE AMINOTRANSFERASE INCREASED [None]
  - BLOOD ALKALINE PHOSPHATASE INCREASED [None]
